FAERS Safety Report 4733021-X (Version None)
Quarter: 2005Q3

REPORT INFORMATION
  Report Type: 
  Country: None (occurrence: None)
  Receive Date: 20050801
  Receipt Date: 20050718
  Transmission Date: 20060218
  Serious: Yes (Other)
  Sender: FDA-Public Use
  Company Number: 2005096045

PATIENT
  Age: 66 Year
  Sex: Female
  Weight: 70 kg

DRUGS (6)
  1. CELECOXIB (CELECOXIB) [Suspect]
     Indication: DIABETIC NEUROPATHY
     Dosage: 200 MG (200 MG, 1 IN 1 D), ORAL
     Route: 048
     Dates: start: 20050502
  2. ATORVASTATIN (AOTRVASTATIN) [Concomitant]
  3. TRIMETAZIDINE (TRIMETAZIDINE) [Concomitant]
  4. BROTIZOLAM (BROTIZOLAM) [Concomitant]
  5. INSULIN [Concomitant]
  6. VENLAFAXINE HCL [Concomitant]

REACTIONS (3)
  - HAEMATEMESIS [None]
  - NAUSEA [None]
  - VOMITING [None]
